FAERS Safety Report 5497055-2 (Version None)
Quarter: 2007Q4

REPORT INFORMATION
  Report Type: 
  Country: None (occurrence: None)
  Receive Date: 20071025
  Receipt Date: 20071017
  Transmission Date: 20080405
  Serious: Yes (Hospitalization)
  Sender: FDA-Public Use
  Company Number: GB-ROCHE-512334

PATIENT
  Age: 57 Year
  Sex: Male
  Weight: 116.6 kg

DRUGS (18)
  1. ORLISTAT [Suspect]
     Indication: OBESITY
     Route: 048
     Dates: start: 20070404
  2. UNSPECIFIED DRUG [Suspect]
     Indication: DRUG USE FOR UNKNOWN INDICATION
     Dosage: INDICATION: TO PROTECT THE KIDNEYS. GIVEN AFTER THE CT SCAN.
     Route: 065
     Dates: start: 20070807
  3. FUROSEMIDE [Concomitant]
     Dosage: TAKEN IN MORNING.
  4. GLICLAZIDE [Concomitant]
     Dosage: TAKEN IN THE MORNING
  5. OMEPRAZOLE [Concomitant]
  6. ATORVASTATIN [Concomitant]
  7. NORTRIPTYLINE HCL [Concomitant]
     Indication: PAIN
     Dosage: TAKEN AT NIGHT.
  8. TIOTROPIUM [Concomitant]
     Dosage: FORM: INHALER CAPSULES
  9. METFORMIN [Concomitant]
     Dosage: 1000MG IN THE MORNING AND 1000MG AT NIGHT
  10. TRAMADOL HCL [Concomitant]
  11. SPIRONOLACTONE [Concomitant]
  12. DIPYRIDAMOL [Concomitant]
     Indication: THROMBOSIS PROPHYLAXIS
  13. AMLODIPINE [Concomitant]
     Indication: BLOOD PRESSURE
     Dosage: TAKEN EVERY MORNING.
  14. PERINDOPRIL ERBUMINE [Concomitant]
     Indication: BLOOD PRESSURE
     Dosage: TAKEN IN THE MORNING.
  15. ASPIRIN [Concomitant]
  16. FLUTICASONE/SALMETEROL [Concomitant]
     Dosage: FORM: DRY POWDER INHALER, STRENGTH: 250MCG+50MCG/INHALER
  17. SALBUTAMOL [Concomitant]
     Dosage: DRUG:SALBUTAMOL CFC FREE INHALER.
  18. PREGABALIN [Concomitant]
     Dosage: 150 MG IN THE MORNING AND 150 MG AT NIGHT.

REACTIONS (1)
  - HYPERSENSITIVITY [None]
